FAERS Safety Report 16288808 (Version 1)
Quarter: 2019Q2

REPORT INFORMATION
  Report Type: Spontaneous
  Country: US (occurrence: US)
  Receive Date: 20190403
  Receipt Date: 20190403
  Transmission Date: 20190711
  Serious: No
  Sender: FDA-Public Use
  Company Number: None

PATIENT
  Age: 69 Year
  Sex: Male

DRUGS (7)
  1. TYLENOL [Concomitant]
     Active Substance: ACETAMINOPHEN
  2. MECLIZINE HCL [Concomitant]
     Active Substance: MECLIZINE HYDROCHLORIDE
  3. PROLIA [Concomitant]
     Active Substance: DENOSUMAB
  4. CI PRO [Concomitant]
  5. ELIGARD [Concomitant]
     Active Substance: LEUPROLIDE ACETATE
  6. PREDNISOLONE. [Concomitant]
     Active Substance: PREDNISOLONE
  7. ZYTIGA [Suspect]
     Active Substance: ABIRATERONE ACETATE
     Indication: PROSTATE CANCER
     Route: 048
     Dates: start: 20190226, end: 20190315

REACTIONS (3)
  - Hepatic failure [None]
  - Tachycardia [None]
  - Therapy cessation [None]
